FAERS Safety Report 16254614 (Version 1)
Quarter: 2019Q2

REPORT INFORMATION
  Report Type: Spontaneous
  Country: GB (occurrence: GB)
  Receive Date: 20190430
  Receipt Date: 20190430
  Transmission Date: 20190711
  Serious: Yes (Hospitalization)
  Sender: FDA-Public Use
  Company Number: GB-ACCORD-124958

PATIENT
  Age: 83 Year
  Sex: Female

DRUGS (11)
  1. DIGOXIN. [Concomitant]
     Active Substance: DIGOXIN
  2. BISOPROLOL [Concomitant]
     Active Substance: BISOPROLOL
  3. WARFARIN [Concomitant]
     Active Substance: WARFARIN
     Dosage: 2MG ONCE DAILY EXCEPT 1MG ON FRIDAYS
  4. TIOTROPIUM/TIOTROPIUM BROMIDE [Concomitant]
  5. FUROSEMIDE. [Suspect]
     Active Substance: FUROSEMIDE
     Indication: PRODUCT USED FOR UNKNOWN INDICATION
  6. CANDESARTAN. [Suspect]
     Active Substance: CANDESARTAN
     Indication: PRODUCT USED FOR UNKNOWN INDICATION
  7. DOSULEPIN HYDROCHLORIDE [Concomitant]
     Active Substance: DOTHIEPIN HYDROCHLORIDE
     Dosage: AT NIGHT
  8. TERBUTALINE [Concomitant]
     Active Substance: TERBUTALINE
     Dosage: 1 PUFF
  9. LANSOPRAZOLE. [Concomitant]
     Active Substance: LANSOPRAZOLE
  10. ATORVASTATIN [Concomitant]
     Active Substance: ATORVASTATIN
  11. SIRDUPLA [Concomitant]
     Active Substance: FLUTICASONE PROPIONATE\SALMETEROL XINAFOATE
     Dosage: 25MICROGRAMS/DOSE / 250MICROGRAMS/DOSE
     Route: 055

REACTIONS (4)
  - Acute kidney injury [Unknown]
  - Dehydration [Unknown]
  - Chest pain [Unknown]
  - Dyspnoea [Unknown]
